FAERS Safety Report 23442537 (Version 1)
Quarter: 2024Q1

REPORT INFORMATION
  Report Type: Spontaneous
  Country: US (occurrence: US)
  Receive Date: 20240125
  Receipt Date: 20240125
  Transmission Date: 20240410
  Serious: Yes (Other)
  Sender: FDA-Public Use
  Company Number: US-GLAND PHARMA LIMITED-2024US000197

PATIENT
  Age: 46 Year
  Sex: Male

DRUGS (4)
  1. MOXIFLOXACIN [Suspect]
     Active Substance: MOXIFLOXACIN
     Indication: Amniotic membrane graft
     Route: 061
  2. DOXYCYCLINE [Suspect]
     Active Substance: DOXYCYCLINE
     Indication: Amniotic membrane graft
     Route: 048
  3. PREDNISOLONE ACETATE [Suspect]
     Active Substance: PREDNISOLONE ACETATE
     Indication: Amniotic membrane graft
     Route: 047
  4. KETOROLAC [Suspect]
     Active Substance: KETOROLAC TROMETHAMINE
     Indication: Amniotic membrane graft
     Route: 047

REACTIONS (6)
  - Hypopyon [Unknown]
  - Corneal epithelium defect [Recovered/Resolved]
  - Corneal infiltrates [Unknown]
  - Drug ineffective for unapproved indication [Unknown]
  - Pain [None]
  - Vision blurred [None]
